FAERS Safety Report 24246974 (Version 2)
Quarter: 2024Q3

REPORT INFORMATION
  Report Type: Spontaneous
  Country: ES (occurrence: ES)
  Receive Date: 20240826
  Receipt Date: 20240926
  Transmission Date: 20241016
  Serious: Yes (Other)
  Sender: AUROBINDO
  Company Number: ES-AUROBINDO-AUR-APL-2024-040957

PATIENT
  Age: 18 Year
  Sex: Male

DRUGS (4)
  1. ARIPIPRAZOLE [Suspect]
     Active Substance: ARIPIPRAZOLE
     Indication: Aicardi-Goutieres syndrome
     Dosage: 10 MILLIGRAM, DAILY, SLIGHT DOSE INCREASE
     Route: 048
  2. DIAZEPAM [Suspect]
     Active Substance: DIAZEPAM
     Indication: Aicardi-Goutieres syndrome
     Dosage: 2.5 MILLIGRAM, 3 TIMES A DAY
     Route: 048
  3. DIAZEPAM [Suspect]
     Active Substance: DIAZEPAM
     Dosage: 5 MILLIGRAM, DAILY
     Route: 048
     Dates: start: 202106
  4. VALPROIC ACID [Suspect]
     Active Substance: VALPROIC ACID
     Indication: Aicardi-Goutieres syndrome
     Dosage: 500 MILLIGRAM, DAILY
     Route: 065

REACTIONS (1)
  - Drug ineffective [Unknown]
